FAERS Safety Report 10387726 (Version 1)
Quarter: 2014Q3

REPORT INFORMATION
  Report Type: Spontaneous
  Country: US (occurrence: US)
  Receive Date: 20140815
  Receipt Date: 20140815
  Transmission Date: 20150326
  Serious: Yes (Hospitalization, Other)
  Sender: FDA-Public Use
  Company Number: US-B.I. PHARMACEUTICALS,INC./RIDGEFIELD-2014-BI-37131BP

PATIENT
  Age: 69 Year
  Sex: Female
  Weight: 54 kg

DRUGS (11)
  1. NEURONTIN [Concomitant]
     Active Substance: GABAPENTIN
     Dosage: 600 MG
     Route: 048
  2. SPIRONOLACTONE. [Concomitant]
     Active Substance: SPIRONOLACTONE
     Dosage: 100 MG
     Route: 048
  3. DILTIAZEM [Concomitant]
     Active Substance: DILTIAZEM
     Dosage: 120 MG
     Route: 048
  4. NEXIUM [Concomitant]
     Active Substance: ESOMEPRAZOLE MAGNESIUM
     Dosage: 40 MG
     Route: 048
  5. TRAMADOL [Concomitant]
     Active Substance: TRAMADOL
     Dosage: 50 MG
     Route: 048
  6. PRADAXA [Suspect]
     Active Substance: DABIGATRAN ETEXILATE MESYLATE
     Indication: ISCHAEMIC STROKE
     Dosage: 300 MG
     Route: 048
     Dates: start: 20120926, end: 20120928
  7. MULTIVITAMIN [Concomitant]
     Active Substance: VITAMINS
     Dosage: 1 ANZ
     Route: 048
  8. AMBIEN [Concomitant]
     Active Substance: ZOLPIDEM TARTRATE
     Dosage: 10 MG
     Route: 048
  9. LASIX [Concomitant]
     Active Substance: FUROSEMIDE
     Dosage: 20 MG
     Route: 048
  10. PRADAXA [Suspect]
     Active Substance: DABIGATRAN ETEXILATE MESYLATE
     Indication: ATRIAL FIBRILLATION
  11. ZOFRAN [Concomitant]
     Active Substance: ONDANSETRON HYDROCHLORIDE
     Indication: NAUSEA
     Dosage: 12 MG
     Route: 048

REACTIONS (4)
  - Lower gastrointestinal haemorrhage [Recovered/Resolved]
  - Renal failure acute [Recovered/Resolved]
  - Anaemia [Recovered/Resolved]
  - Loss of consciousness [Recovered/Resolved]

NARRATIVE: CASE EVENT DATE: 20120928
